FAERS Safety Report 22015214 (Version 1)
Quarter: 2023Q1

REPORT INFORMATION
  Report Type: Spontaneous
  Country: US (occurrence: US)
  Receive Date: 20230221
  Receipt Date: 20230221
  Transmission Date: 20230417
  Serious: No
  Sender: FDA-Public Use
  Company Number: US-GSK-US2023AMR023107

PATIENT
  Age: 89 Year
  Sex: Female

DRUGS (1)
  1. FLUTICASONE PROPIONATE\SALMETEROL XINAFOATE [Suspect]
     Active Substance: FLUTICASONE PROPIONATE\SALMETEROL XINAFOATE
     Indication: Pneumonia
     Dosage: UNK

REACTIONS (4)
  - Sputum discoloured [Recovered/Resolved]
  - Wrong technique in device usage process [Unknown]
  - Product prescribing issue [Unknown]
  - Product dose omission issue [Unknown]
